FAERS Safety Report 5824929-2 (Version None)
Quarter: 2008Q3

REPORT INFORMATION
  Report Type: 
  Country: None (occurrence: None)
  Receive Date: 20080728
  Receipt Date: 20080716
  Transmission Date: 20090109
  Serious: Yes (Other)
  Sender: FDA-Public Use
  Company Number: IE-PFIZER INC-2008061007

PATIENT
  Sex: Female

DRUGS (2)
  1. CHANTIX [Suspect]
     Indication: SMOKING CESSATION THERAPY
     Route: 048
  2. NORGESTIMATE AND ETHINYL ESTRADIOL [Concomitant]

REACTIONS (3)
  - AGGRESSION [None]
  - MOOD ALTERED [None]
  - NAUSEA [None]
